FAERS Safety Report 21936417 (Version 1)
Quarter: 2023Q1

REPORT INFORMATION
  Report Type: Spontaneous
  Country: US (occurrence: US)
  Receive Date: 20230201
  Receipt Date: 20230201
  Transmission Date: 20230417
  Serious: No
  Sender: FDA-Public Use
  Company Number: US-INCYTE CORPORATION-2021IN000540

PATIENT

DRUGS (1)
  1. PEMAZYRE [Suspect]
     Active Substance: PEMIGATINIB
     Indication: Cholangiocarcinoma
     Dosage: UNK
     Route: 065
     Dates: start: 2020

REACTIONS (5)
  - Toxicity to various agents [Unknown]
  - Dehydration [Unknown]
  - Hyperphosphataemia [Unknown]
  - Nausea [Unknown]
  - Fatigue [Unknown]
